FAERS Safety Report 5775003-5 (Version None)
Quarter: 2008Q2

REPORT INFORMATION
  Report Type: 
  Country: None (occurrence: None)
  Receive Date: 20080612
  Receipt Date: 20080603
  Transmission Date: 20081010
  Serious: Yes (Other)
  Sender: FDA-Public Use
  Company Number: 237431K07USA

PATIENT
  Age: 60 Year
  Sex: Female
  Weight: 54.4316 kg

DRUGS (7)
  1. REBIF [Suspect]
     Indication: MULTIPLE SCLEROSIS
     Dosage: 3 IN 1 WEEKS, SUBCUTANEOUS; 8.8 MCG, 3 IN 1 WEEKS, SUBCUTANEOUS; 44 MCG, 3 IN 1 WEEKS, SUBCUTANEOUS
     Route: 058
     Dates: start: 20070805, end: 20070101
  2. REBIF [Suspect]
     Indication: MULTIPLE SCLEROSIS
     Dosage: 3 IN 1 WEEKS, SUBCUTANEOUS; 8.8 MCG, 3 IN 1 WEEKS, SUBCUTANEOUS; 44 MCG, 3 IN 1 WEEKS, SUBCUTANEOUS
     Route: 058
     Dates: start: 20060602, end: 20070501
  3. REBIF [Suspect]
     Indication: MULTIPLE SCLEROSIS
     Dosage: 3 IN 1 WEEKS, SUBCUTANEOUS; 8.8 MCG, 3 IN 1 WEEKS, SUBCUTANEOUS; 44 MCG, 3 IN 1 WEEKS, SUBCUTANEOUS
     Route: 058
     Dates: start: 20070101
  4. TYSABRI [Suspect]
     Dosage: ONCE,; ONCE,; ONCE,
     Dates: start: 20070608, end: 20070608
  5. TYSABRI [Suspect]
     Dosage: ONCE,; ONCE,; ONCE,
     Dates: start: 20070706, end: 20070706
  6. TYSABRI [Suspect]
     Dosage: ONCE,; ONCE,; ONCE,
     Dates: start: 20070803, end: 20070803
  7. SYNTHROID [Concomitant]

REACTIONS (4)
  - BLOOD CHOLESTEROL INCREASED [None]
  - CHRONIC LYMPHOCYTIC LEUKAEMIA [None]
  - PLATELET COUNT DECREASED [None]
  - RED BLOOD CELL COUNT DECREASED [None]
